FAERS Safety Report 8302193-2 (Version None)
Quarter: 2012Q2

REPORT INFORMATION
  Report Type: 
  Country: None (occurrence: None)
  Receive Date: 20120420
  Receipt Date: 20120416
  Transmission Date: 20120825
  Serious: Yes (Hospitalization)
  Sender: FDA-Public Use
  Company Number: SE-US-EMD SERONO, INC.-7097050

PATIENT
  Sex: Male

DRUGS (5)
  1. REBIF [Suspect]
     Indication: RELAPSING-REMITTING MULTIPLE SCLEROSIS
     Route: 058
     Dates: start: 20100201, end: 20120101
  2. CANDESARTAN CILEXETIL [Concomitant]
     Indication: PRODUCT USED FOR UNKNOWN INDICATION
  3. SERTRALINE HYDROCHLORIDE [Concomitant]
     Indication: DEPRESSION
     Route: 048
     Dates: start: 20070101
  4. REBIF [Suspect]
     Dates: start: 20120301
  5. LYRICA [Concomitant]
     Indication: PAIN
     Route: 048
     Dates: start: 20100201

REACTIONS (4)
  - PULMONARY THROMBOSIS [None]
  - RENAL NEOPLASM [None]
  - PYREXIA [None]
  - CHILLS [None]
